FAERS Safety Report 11197228 (Version 2)
Quarter: 2018Q3

REPORT INFORMATION
  Report Type: Report from Study
  Country: US (occurrence: US)
  Receive Date: 20150617
  Receipt Date: 20180710
  Transmission Date: 20181010
  Serious: No
  Sender: FDA-Public Use
  Company Number: US-SA-2014SA160284

PATIENT
  Age: 69 Year
  Sex: Female

DRUGS (3)
  1. CEREZYME [Suspect]
     Active Substance: IMIGLUCERASE
     Indication: GAUCHER^S DISEASE
     Dosage: 2400 IU,QOW
     Route: 041
     Dates: start: 199403
  2. CEREZYME [Suspect]
     Active Substance: IMIGLUCERASE
     Dosage: 2100, FREQUENCY: Q2 (UNITS NOT PROVIDED)
     Route: 041
     Dates: start: 19990731
  3. AGALSIDASE BETA [Suspect]
     Active Substance: AGALSIDASE BETA

REACTIONS (3)
  - Bone pain [Unknown]
  - Blood pressure abnormal [Unknown]
  - Condition aggravated [Unknown]

NARRATIVE: CASE EVENT DATE: 20141114
